FAERS Safety Report 9104033 (Version 3)
Quarter: 2013Q2

REPORT INFORMATION
  Report Type: Spontaneous
  Country: JP (occurrence: JP)
  Receive Date: 20130219
  Receipt Date: 20130426
  Transmission Date: 20140414
  Serious: Yes (Other)
  Sender: FDA-Public Use
  Company Number: JP-BRISTOL-MYERS SQUIBB COMPANY-17392242

PATIENT
  Age: 44 Year
  Sex: Male

DRUGS (7)
  1. ABILIFY DISCMELT TABS [Suspect]
     Indication: PSYCHOTIC DISORDER
     Dosage: ALSO TAKEN 30ML?ABILIFY TABS: 24MG/DAY
     Route: 048
  2. ABILIFY TABS [Suspect]
     Indication: PSYCHOTIC DISORDER
     Route: 048
  3. ABILIFY ORAL SOLUTION [Suspect]
     Indication: PSYCHOTIC DISORDER
     Route: 048
     Dates: end: 2012
  4. ANAFRANIL [Suspect]
     Route: 048
  5. SILECE [Suspect]
     Route: 048
  6. LEVOTOMIN [Suspect]
     Dosage: PRODUCT STRENGTH IS 25MG
     Route: 048
  7. EURODIN [Suspect]
     Route: 048

REACTIONS (3)
  - Convulsion [Recovered/Resolved]
  - Loss of consciousness [Recovered/Resolved]
  - Off label use [Unknown]
